FAERS Safety Report 7053530-0 (Version None)
Quarter: 2010Q4

REPORT INFORMATION
  Report Type: 
  Country: None (occurrence: None)
  Receive Date: 20101020
  Receipt Date: 20101012
  Transmission Date: 20110411
  Serious: Yes (Hospitalization)
  Sender: FDA-Public Use
  Company Number: IT-JNJFOC-20101003236

PATIENT
  Sex: Female

DRUGS (4)
  1. HALDOL [Suspect]
     Indication: SCHIZOPHRENIA
     Route: 048
  2. LEPONEX [Suspect]
     Indication: SCHIZOPHRENIA
     Route: 048
  3. TACHIPIRINA [Suspect]
     Indication: HYPERPYREXIA
     Route: 048
  4. EN [Concomitant]
     Indication: PRODUCT USED FOR UNKNOWN INDICATION
     Route: 048

REACTIONS (3)
  - ASTHENIA [None]
  - BONE MARROW FAILURE [None]
  - HYPERPYREXIA [None]
